FAERS Safety Report 13592254 (Version 1)
Quarter: 2017Q2

REPORT INFORMATION
  Report Type: Spontaneous
  Country: DE (occurrence: DE)
  Receive Date: 20170530
  Receipt Date: 20170530
  Transmission Date: 20170830
  Serious: Yes (Hospitalization, Other)
  Sender: FDA-Public Use
  Company Number: PHHY2016DE117582

PATIENT
  Sex: Female

DRUGS (7)
  1. TASIGNA [Suspect]
     Active Substance: NILOTINIB
     Dosage: 150 MG, UNK
     Route: 065
  2. TASIGNA [Suspect]
     Active Substance: NILOTINIB
     Indication: CHRONIC MYELOID LEUKAEMIA
     Dosage: 300 MG, BID
     Route: 065
     Dates: start: 2013, end: 201608
  3. TASIGNA [Suspect]
     Active Substance: NILOTINIB
     Dosage: 150 MG, BID
     Route: 065
     Dates: start: 20160920, end: 201611
  4. TASIGNA [Suspect]
     Active Substance: NILOTINIB
     Dosage: 450 MG, QD (300 MG IN THE MORNING AND 150 MG IN THE EVENING)
     Route: 065
  5. VITAMIN D3 [Concomitant]
     Active Substance: CHOLECALCIFEROL
     Indication: PRODUCT USED FOR UNKNOWN INDICATION
     Route: 065
  6. TASIGNA [Suspect]
     Active Substance: NILOTINIB
     Dosage: 300 MG, UNK
     Route: 065
     Dates: start: 20160819
  7. TASIGNA [Suspect]
     Active Substance: NILOTINIB
     Dosage: 300 UNK, UNK
     Route: 065
     Dates: start: 201612, end: 20170518

REACTIONS (16)
  - Chills [Unknown]
  - Haematocrit decreased [Unknown]
  - White blood cell count decreased [Unknown]
  - Fibroadenoma of breast [Unknown]
  - Cystitis [Unknown]
  - Pyrexia [Unknown]
  - Rash [Unknown]
  - Haemoglobin decreased [Unknown]
  - Dizziness [Unknown]
  - Platelet count abnormal [Unknown]
  - Eczema [Recovering/Resolving]
  - Poor peripheral circulation [Unknown]
  - Viral infection [Unknown]
  - Cytogenetic analysis abnormal [Unknown]
  - Red blood cell count decreased [Unknown]
  - Hormone level abnormal [Unknown]

NARRATIVE: CASE EVENT DATE: 2015
